FAERS Safety Report 4626357-4 (Version None)
Quarter: 2005Q2

REPORT INFORMATION
  Report Type: 
  Country: None (occurrence: None)
  Receive Date: 20050404
  Receipt Date: 20050325
  Transmission Date: 20051028
  Serious: Yes (Hospitalization)
  Sender: FDA-Public Use
  Company Number: JP-GLAXOSMITHKLINE-B0376002A

PATIENT
  Age: 79 Year
  Sex: Male
  Weight: 45 kg

DRUGS (3)
  1. VALTREX [Suspect]
     Indication: HERPES ZOSTER
     Dosage: 1000MG THREE TIMES PER DAY
     Route: 048
     Dates: start: 20050313, end: 20050315
  2. UBRETID [Concomitant]
     Indication: URINARY RETENTION
     Dosage: 5MG TWICE PER DAY
     Route: 048
     Dates: start: 20050313, end: 20050315
  3. EBRANTIL [Concomitant]
     Indication: URINARY RETENTION
     Dosage: 15MG TWICE PER DAY
     Route: 048
     Dates: start: 20050313, end: 20050315

REACTIONS (5)
  - DECREASED APPETITE [None]
  - DEHYDRATION [None]
  - RENAL FAILURE ACUTE [None]
  - URINARY RETENTION [None]
  - VOMITING [None]
